FAERS Safety Report 5025817-4 (Version None)
Quarter: 2006Q2

REPORT INFORMATION
  Report Type: 
  Country: None (occurrence: None)
  Receive Date: 20060427
  Receipt Date: 20050422
  Transmission Date: 20061013
  Serious: Yes (Other)
  Sender: FDA-Public Use
  Company Number: 2005063917

PATIENT
  Sex: 0

DRUGS (3)
  1. ZITHROMAX [Suspect]
     Indication: ILL-DEFINED DISORDER
  2. CARBAMAZEPINE [Concomitant]
  3. LEVETIRACETAM [Concomitant]

REACTIONS (1)
  - CONVULSION [None]
